FAERS Safety Report 5159961-8 (Version None)
Quarter: 2006Q4

REPORT INFORMATION
  Report Type: 
  Country: None (occurrence: None)
  Receive Date: 20061117
  Receipt Date: 20061106
  Transmission Date: 20070319
  Serious: Yes (Other)
  Sender: FDA-Public Use
  Company Number: 232219

PATIENT
  Age: 61 Year
  Sex: Male
  Weight: 102 kg

DRUGS (13)
  1. RITUXAN [Suspect]
     Indication: RHEUMATOID ARTHRITIS
     Dates: start: 20060608
  2. DRUG UNKNOWN (GENERIC COMPONENT(S) NOT KNOWN) [Suspect]
     Indication: DRUG USE FOR UNKNOWN INDICATION
  3. CONCOMITANT DRUG (GENERIC COMPONENT(S) NOT KNOWN) [Concomitant]
  4. CELLCEPT [Concomitant]
  5. CRESTOR [Concomitant]
  6. AVAPRO [Concomitant]
  7. METFORMIN HCL [Concomitant]
  8. VICODIN [Concomitant]
  9. ASPIRIN [Concomitant]
  10. GARLIC TABS (GARLIC) [Concomitant]
  11. VITAMIN E [Concomitant]
  12. FLEXERILL (CYCLOBENZAPRINE HYDROCHLORIDE) [Concomitant]
  13. PREDNISONE TAB [Concomitant]

REACTIONS (1)
  - JOINT SWELLING [None]
